FAERS Safety Report 25869779 (Version 1)
Quarter: 2025Q4

REPORT INFORMATION
  Report Type: Spontaneous
  Country: GB (occurrence: GB)
  Receive Date: 20251001
  Receipt Date: 20251001
  Transmission Date: 20260118
  Serious: Yes (Other)
  Sender: TEVA
  Company Number: GB-MHRA-TPP31594517C8887069YC1759139600145

PATIENT
  Age: 73 Year
  Sex: Female
  Weight: 51 kg

DRUGS (11)
  1. AMLODIPINE [Suspect]
     Active Substance: AMLODIPINE BESYLATE
     Indication: Hypertension
     Dosage: 10 MG DAILY
     Route: 065
     Dates: start: 20250711
  2. CALCIUM CARBONATE [Concomitant]
     Active Substance: CALCIUM CARBONATE
     Indication: Ill-defined disorder
     Dosage: CHEW ONE TABLET TWICE A DAY (CALCIUM + VITAMIN ..., 2 DOSAGE FORMS DAILY, DURATION: 226 DAYS
     Route: 048
     Dates: start: 20241125, end: 20250708
  3. SERTRALINE [Concomitant]
     Active Substance: SERTRALINE HYDROCHLORIDE
     Indication: Ill-defined disorder
     Dosage: ONE TABLET DAILY (ANTIDEPRESSANT), 1 DOSAGE FORMS DAILY
     Dates: start: 20240129
  4. LORAZEPAM [Concomitant]
     Active Substance: LORAZEPAM
     Indication: Ill-defined disorder
     Dosage: ONE OR TWO TABLETS UP TO THREE TIMES A DAY AS N..., DURATION: 1.263 YEARS
     Dates: start: 20240404, end: 20250708
  5. BENZYDAMINE [Concomitant]
     Active Substance: BENZYDAMINE
     Indication: Ill-defined disorder
     Dosage: 15ML DOSE RINSED OR GARGLED EVERY 1.5 - 3 HOURS..., DURATION: 342 DAYS
     Dates: start: 20240801, end: 20250708
  6. POLYETHYLENE GLYCOL 3350\POTASSIUM CHLORIDE\SODIUM BICARBONATE\SODIUM [Concomitant]
     Active Substance: POLYETHYLENE GLYCOL 3350\POTASSIUM CHLORIDE\SODIUM BICARBONATE\SODIUM CHLORIDE
     Indication: Ill-defined disorder
     Dosage: ONE OR TWO SACHETS DAILY : MIXED WITH WATER (TO..., DURATION: 50 DAYS
     Dates: start: 20250711, end: 20250829
  7. SENNA [Concomitant]
     Active Substance: SENNOSIDES
     Indication: Ill-defined disorder
     Dosage: ONE OR TWO TABLETS AT BEDTIME AS NEEDED (TO STI...
     Dates: start: 20250711
  8. CLOTRIMAZOLE [Concomitant]
     Active Substance: CLOTRIMAZOLE
     Indication: Ill-defined disorder
     Dosage: APPLY 2-3 TIMES/DAY, DURATION: 31 DAYS
     Dates: start: 20250711, end: 20250810
  9. AMOXICILLIN [Concomitant]
     Active Substance: AMOXICILLIN
     Indication: Ill-defined disorder
     Dosage: TIME INTERVAL: 0.33333333 DAYS: TAKE ONE 3 TIMES/DAY - RESCUE COURSE, 3 DOSAGE FORMS DAILY, DURAT...
     Dates: start: 20250324, end: 20250708
  10. ATORVASTATIN [Concomitant]
     Active Substance: ATORVASTATIN
     Indication: Blood cholesterol increased
     Dosage: ONE TABLET DAILY AT NIGHT, DURATION : 277 DAYS, 1 DOSAGE FORMS DAILY
     Dates: start: 20241005, end: 20250708
  11. MIRABEGRON [Concomitant]
     Active Substance: MIRABEGRON
     Indication: Ill-defined disorder
     Dosage: ONE TABLET DAILY (TO REDUCE BLADDER URGE), DURATION: 8 DAYS
     Dates: start: 20250808, end: 20250815

REACTIONS (1)
  - Joint swelling [Recovered/Resolved]
